FAERS Safety Report 8035709-4 (Version None)
Quarter: 2012Q1

REPORT INFORMATION
  Report Type: 
  Country: None (occurrence: None)
  Receive Date: 20120111
  Receipt Date: 20120103
  Transmission Date: 20120608
  Serious: Yes (Hospitalization)
  Sender: FDA-Public Use
  Company Number: FR-JNJFOC-20120100969

PATIENT
  Age: 45 Year
  Sex: Male

DRUGS (5)
  1. REMICADE [Suspect]
     Indication: COLITIS ULCERATIVE
     Route: 042
     Dates: start: 20110601
  2. FIVASA [Concomitant]
     Indication: COLITIS ULCERATIVE
  3. IMURAN [Concomitant]
     Indication: COLITIS ULCERATIVE
     Dates: start: 20101101
  4. PURINETHOL [Concomitant]
     Indication: COLITIS ULCERATIVE
     Route: 048
     Dates: start: 20110701
  5. PREDNISOLONE [Concomitant]
     Indication: COLITIS ULCERATIVE
     Route: 048
     Dates: start: 20110601

REACTIONS (4)
  - PULMONARY EMBOLISM [None]
  - CLOSTRIDIUM DIFFICILE COLITIS [None]
  - MESENTERIC VEIN THROMBOSIS [None]
  - COLITIS ULCERATIVE [None]
